FAERS Safety Report 24731678 (Version 1)
Quarter: 2024Q4

REPORT INFORMATION
  Report Type: Spontaneous
  Country: US (occurrence: None)
  Receive Date: 20241213
  Receipt Date: 20241213
  Transmission Date: 20250114
  Serious: No
  Sender: Public
  Company Number: None

PATIENT
  Age: 79 Year
  Sex: Male
  Weight: 77 kg

DRUGS (1)
  1. METHIMAZOLE [Suspect]
     Active Substance: METHIMAZOLE
     Indication: Hyperthyroidism
     Dosage: 20.00 MG DAILY ORAL?
     Route: 048

REACTIONS (3)
  - Neutropenia [None]
  - Leukopenia [None]
  - Atrial fibrillation [None]

NARRATIVE: CASE EVENT DATE: 20240821
